FAERS Safety Report 8545434-9 (Version None)
Quarter: 2012Q3

REPORT INFORMATION
  Report Type: 
  Country: None (occurrence: None)
  Receive Date: 20120727
  Receipt Date: 20111104
  Transmission Date: 20120928
  Serious: No
  Sender: FDA-Public Use
  Company Number: US-ASTRAZENECA-2011SE66967

PATIENT
  Age: 63 Year
  Sex: Female
  Weight: 66.2 kg

DRUGS (11)
  1. SEROQUEL XR [Suspect]
     Indication: BIPOLAR II DISORDER
     Dosage: 100 MG IN THE MORNING AND 150 MG AT NIGHT
     Route: 048
  2. SEROQUEL XR [Suspect]
     Route: 048
  3. VIVELLE-DOT [Concomitant]
     Indication: HORMONE THERAPY
     Route: 061
  4. KLONOPIN [Concomitant]
     Indication: ANXIETY
     Route: 048
     Dates: start: 19880101
  5. PROMETRIUM [Concomitant]
     Indication: HORMONE THERAPY
     Route: 048
  6. ZOCOR [Concomitant]
     Indication: HYPERCHOLESTEROLAEMIA
     Route: 048
  7. TRILEPTAL [Concomitant]
     Route: 048
  8. ATENOLOL [Concomitant]
     Indication: TREMOR
     Route: 048
  9. SEROQUEL XR [Suspect]
     Dosage: 100 MG IN THE MORNING AND 150 MG AT NIGHT
     Route: 048
     Dates: start: 20111103
  10. TOPAMAX [Concomitant]
     Route: 048
  11. LEVO PHYROXIN [Concomitant]
     Indication: THYROID DISORDER
     Route: 048

REACTIONS (8)
  - NAUSEA [None]
  - BALANCE DISORDER [None]
  - WEIGHT DECREASED [None]
  - MUSCULAR WEAKNESS [None]
  - TINNITUS [None]
  - TREMOR [None]
  - NIGHTMARE [None]
  - SWOLLEN TONGUE [None]
